FAERS Safety Report 10397017 (Version 1)
Quarter: 2014Q3

REPORT INFORMATION
  Report Type: Spontaneous
  Country: EG (occurrence: EG)
  Receive Date: 20140820
  Receipt Date: 20140820
  Transmission Date: 20150326
  Serious: Yes (Death, Hospitalization)
  Sender: FDA-Public Use
  Company Number: PHHY2014EG103178

PATIENT
  Sex: Male

DRUGS (1)
  1. CERTICAN [Suspect]
     Active Substance: EVEROLIMUS
     Dosage: UNK UKN, UNK

REACTIONS (3)
  - Death [Fatal]
  - Pulmonary embolism [Unknown]
  - Pneumonitis [Recovering/Resolving]
